FAERS Safety Report 5498617-9 (Version None)
Quarter: 2007Q4

REPORT INFORMATION
  Report Type: 
  Country: None (occurrence: None)
  Receive Date: 20071026
  Receipt Date: 20071018
  Transmission Date: 20080405
  Serious: Yes (Other)
  Sender: FDA-Public Use
  Company Number: PHBS2007BR17421

PATIENT
  Age: 51 Year
  Sex: Female

DRUGS (7)
  1. MIFLASONE [Suspect]
     Indication: BRONCHITIS
  2. FORASEQ [Suspect]
     Indication: BRONCHITIS
     Dosage: 1 DF, QD
  3. TEOLONG [Concomitant]
  4. SALBUTAMOL [Concomitant]
  5. KETOTIFEN FUMARATE [Concomitant]
  6. AEROLIN [Concomitant]
     Indication: BRONCHITIS
  7. OMEPRAZOLE [Concomitant]

REACTIONS (5)
  - DRUG INEFFECTIVE [None]
  - MEDICATION ERROR [None]
  - PNEUMONIA [None]
  - SURGERY [None]
  - TREMOR [None]
